FAERS Safety Report 17352864 (Version 1)
Quarter: 2020Q1

REPORT INFORMATION
  Report Type: Spontaneous
  Country: US (occurrence: US)
  Receive Date: 20200131
  Receipt Date: 20200131
  Transmission Date: 20200409
  Serious: No
  Sender: FDA-Public Use
  Company Number: US-009507513-2001USA007830

PATIENT
  Sex: Female

DRUGS (1)
  1. NUVARING [Suspect]
     Active Substance: ETHINYL ESTRADIOL\ETONOGESTREL
     Indication: MIGRAINE
     Dosage: ONE RING, EVERY 21 DAYS, AFTER 3 ^21 DAY TIME FRAMES^ WITHOUT FOR 1 WEEK
     Route: 067

REACTIONS (4)
  - Drug effective for unapproved indication [Unknown]
  - Inappropriate schedule of product administration [Unknown]
  - Oligomenorrhoea [Unknown]
  - Migraine [Recovered/Resolved]
